FAERS Safety Report 5375751-5 (Version None)
Quarter: 2007Q2

REPORT INFORMATION
  Report Type: 
  Country: None (occurrence: None)
  Receive Date: 20070628
  Receipt Date: 20070612
  Transmission Date: 20071010
  Serious: Yes (Other)
  Sender: FDA-Public Use
  Company Number: 2007BI011426

PATIENT
  Age: 41 Year
  Sex: Female

DRUGS (2)
  1. AVONEX [Suspect]
     Indication: MULTIPLE SCLEROSIS
     Dosage: 30 UG; QW; IM
     Route: 030
     Dates: start: 20040101, end: 20070401
  2. AVONEX [Suspect]
     Indication: MULTIPLE SCLEROSIS
     Dosage: 30 UG; QW;
     Dates: end: 20070501

REACTIONS (10)
  - ASTHENIA [None]
  - COGNITIVE DISORDER [None]
  - CONVULSION [None]
  - DEPRESSION [None]
  - DIARRHOEA [None]
  - GAIT DISTURBANCE [None]
  - HEARING IMPAIRED [None]
  - OPTIC NEURITIS [None]
  - SPEECH DISORDER [None]
  - TOOTH INFECTION [None]
